FAERS Safety Report 15159924 (Version 3)
Quarter: 2018Q4

REPORT INFORMATION
  Report Type: Report from Study
  Country: JP (occurrence: JP)
  Receive Date: 20180718
  Receipt Date: 20181024
  Transmission Date: 20190204
  Serious: Yes (Death, Hospitalization, Other)
  Sender: FDA-Public Use
  Company Number: JP-SA-2018SA184343

PATIENT
  Age: 78 Year
  Sex: Male
  Weight: 50 kg

DRUGS (5)
  1. CALCIUM LEVOFOLINATE [Suspect]
     Active Substance: LEVOLEUCOVORIN CALCIUM
     Indication: COLON CANCER
     Dosage: 300 MG/M2, 1X
     Route: 065
     Dates: start: 20180622, end: 20180622
  2. IRINOTECAN [Suspect]
     Active Substance: IRINOTECAN
     Indication: COLON CANCER
     Dosage: 110 MG/M2, 1X
     Route: 065
     Dates: start: 20180622, end: 20180622
  3. OXALIPLATIN. [Suspect]
     Active Substance: OXALIPLATIN
     Indication: COLON CANCER
     Dosage: 500 MG/M2, 1X
     Route: 065
     Dates: start: 20180622, end: 20180622
  4. AFLIBERCEPT [Suspect]
     Active Substance: AFLIBERCEPT
     Indication: COLON CANCER
     Dosage: 200 MG/BODY
     Route: 041
     Dates: start: 20180622
  5. FLUOROURACIL. [Suspect]
     Active Substance: FLUOROURACIL
     Indication: COLON CANCER
     Dosage: 2900 MG/M2, 1X
     Route: 041
     Dates: start: 20180622, end: 20180622

REACTIONS (6)
  - Pneumonia [Fatal]
  - Neutrophil count decreased [Unknown]
  - Melaena [Fatal]
  - Bacteraemia [Unknown]
  - Haematemesis [Fatal]
  - Gastrointestinal haemorrhage [Fatal]

NARRATIVE: CASE EVENT DATE: 20180703
